FAERS Safety Report 4610153-8 (Version None)
Quarter: 2005Q1

REPORT INFORMATION
  Report Type: 
  Country: None (occurrence: None)
  Receive Date: 20050316
  Receipt Date: 20050303
  Transmission Date: 20050727
  Serious: Yes (Hospitalization)
  Sender: FDA-Public Use
  Company Number: US-GLAXOSMITHKLINE-A0548066A

PATIENT
  Age: 80 Year
  Sex: Female

DRUGS (6)
  1. ECOTRIN ADULT LOW STRENGTH TABLETS [Suspect]
     Indication: ANALGESIC INTERVENTION SUPPORTIVE THERAPY
     Route: 048
     Dates: start: 20020101
  2. NORVASC [Suspect]
     Indication: DRUG USE FOR UNKNOWN INDICATION
     Dates: end: 20040701
  3. LEVOTHYROXINE [Concomitant]
  4. BENICAR [Concomitant]
     Dates: start: 20040701
  5. NEXIUM [Concomitant]
  6. ZOCOR [Concomitant]

REACTIONS (6)
  - BLOOD POTASSIUM DECREASED [None]
  - BLOOD SODIUM DECREASED [None]
  - CELLULITIS [None]
  - HYPOKALAEMIA [None]
  - HYPONATRAEMIA [None]
  - OEDEMA PERIPHERAL [None]
